FAERS Safety Report 14323203 (Version 1)
Quarter: 2017Q4

REPORT INFORMATION
  Report Type: Spontaneous
  Country: US (occurrence: US)
  Receive Date: 20171226
  Receipt Date: 20171226
  Transmission Date: 20180321
  Serious: Yes (Other)
  Sender: FDA-Public Use
  Company Number: US-009507513-1712USA010375

PATIENT
  Sex: Male

DRUGS (2)
  1. PROSCAR [Suspect]
     Active Substance: FINASTERIDE
     Indication: PROSTATOMEGALY
  2. NORTHERA [Suspect]
     Active Substance: DROXIDOPA
     Dosage: UNK
     Dates: end: 20171101

REACTIONS (3)
  - Autonomic failure syndrome [Unknown]
  - Hypertension [Unknown]
  - Blood pressure fluctuation [Unknown]
